FAERS Safety Report 9637534 (Version 1)
Quarter: 2013Q4

REPORT INFORMATION
  Report Type: Spontaneous
  Country: US (occurrence: None)
  Receive Date: 20131018
  Receipt Date: 20131018
  Transmission Date: 20140711
  Serious: No
  Sender: FDA-Public Use
  Company Number: C-13-093

PATIENT
  Age: 52 Year
  Sex: Female

DRUGS (1)
  1. OXYCODONE [Suspect]
     Indication: PROCEDURAL PAIN
     Route: 048
     Dates: start: 20130928, end: 20130928

REACTIONS (4)
  - Vomiting [None]
  - Nausea [None]
  - Tinnitus [None]
  - Hallucination, visual [None]
